FAERS Safety Report 4827503-X (Version None)
Quarter: 2005Q4

REPORT INFORMATION
  Report Type: 
  Country: None (occurrence: None)
  Receive Date: 20051110
  Receipt Date: 20051102
  Transmission Date: 20060501
  Serious: Yes (Other)
  Sender: FDA-Public Use
  Company Number: 219115

PATIENT
  Age: 72 Year
  Sex: Female
  Weight: 80 kg

DRUGS (6)
  1. MABTHERA (RITUXIMAB) CONC FOR SOLUTION FOR INFUSION [Suspect]
     Indication: LYMPHOMA
     Dosage: 650 MG, Q2M, INTRAVENOUS
     Route: 042
     Dates: start: 20050207
  2. FLUDARABINE [Suspect]
     Indication: LYMPHOMA
     Dosage: 40 MG, Q28D, INTRAVENOUS
     Route: 042
     Dates: start: 20050125, end: 20050429
  3. MITOXANTRONE [Suspect]
     Indication: LYMPHOMA
     Dosage: 17 MG, Q28D, INTRAVENOUS
     Route: 042
     Dates: start: 20050125
  4. DEXAMETHASONE [Suspect]
     Indication: LYMPHOMA
     Dosage: 10 MG, Q28D, INTRAVENOUS
     Route: 042
     Dates: start: 20050125, end: 20050429
  5. LAMIVUDINE [Concomitant]
  6. INDAPAMIDE [Concomitant]

REACTIONS (1)
  - NEUTROPENIA [None]
